FAERS Safety Report 8370427-4 (Version None)
Quarter: 2012Q2

REPORT INFORMATION
  Report Type: 
  Country: None (occurrence: None)
  Receive Date: 20120518
  Receipt Date: 20120515
  Transmission Date: 20120825
  Serious: No
  Sender: FDA-Public Use
  Company Number: US-PFIZER INC-2012118153

PATIENT
  Sex: Female

DRUGS (2)
  1. PROTONIX [Suspect]
     Indication: GASTROOESOPHAGEAL REFLUX DISEASE
     Dosage: 20 MG, DAILY
     Dates: start: 20100101
  2. PROTONIX [Suspect]
     Dosage: 40 MG, TWICE DAILY
     Dates: start: 20111101, end: 20120510

REACTIONS (6)
  - HYPERSENSITIVITY [None]
  - MEMORY IMPAIRMENT [None]
  - PRURITUS ALLERGIC [None]
  - RASH PAPULAR [None]
  - SLUGGISHNESS [None]
  - FATIGUE [None]
